FAERS Safety Report 9730951 (Version 1)
Quarter: 2013Q4

REPORT INFORMATION
  Report Type: Report from Study
  Country: FR (occurrence: FR)
  Receive Date: 20131205
  Receipt Date: 20131205
  Transmission Date: 20140711
  Serious: Yes (Hospitalization)
  Sender: FDA-Public Use
  Company Number: FR-ROCHE-1311494

PATIENT
  Sex: 0

DRUGS (4)
  1. MYCOPHENOLATE MOFETIL [Suspect]
     Indication: RENAL TRANSPLANT
     Route: 048
     Dates: start: 20120907, end: 201304
  2. SOLUPRED (FRANCE) [Suspect]
     Indication: RENAL TRANSPLANT
     Route: 048
     Dates: start: 20120907
  3. VORICONAZOLE [Suspect]
     Indication: RENAL TRANSPLANT
     Route: 065
     Dates: start: 20130507, end: 20130808
  4. ADVAGRAF [Suspect]
     Indication: RENAL TRANSPLANT
     Dosage: DISCONTINUATION AND RECHALLENGING END OF JULY 2013
     Route: 065
     Dates: start: 20130211, end: 20130810

REACTIONS (4)
  - Renal impairment [Recovering/Resolving]
  - Hyperkalaemia [Recovered/Resolved]
  - Sinus bradycardia [Recovering/Resolving]
  - Cardiac failure [Recovering/Resolving]
